FAERS Safety Report 5936774-8 (Version None)
Quarter: 2008Q4

REPORT INFORMATION
  Report Type: 
  Country: None (occurrence: None)
  Receive Date: 20081029
  Receipt Date: 20081017
  Transmission Date: 20090506
  Serious: Yes (Hospitalization, Other)
  Sender: FDA-Public Use
  Company Number: 2008-03538

PATIENT
  Age: 16 Year
  Sex: Male
  Weight: 65.7 kg

DRUGS (11)
  1. VELCADE [Suspect]
     Indication: ACUTE LYMPHOCYTIC LEUKAEMIA
     Dosage: 1.3 MG/M2, IV BOLUS
     Route: 040
     Dates: start: 20080822, end: 20080831
  2. VINCRISTINE [Suspect]
     Indication: ACUTE LYMPHOCYTIC LEUKAEMIA
     Dosage: 2 MG, INTRAVENOUS
     Route: 042
     Dates: start: 20080822, end: 20080828
  3. DEXAMETHASONE TAB [Suspect]
     Indication: ACUTE LYMPHOCYTIC LEUKAEMIA
     Dosage: 10 MG, ORAL
     Route: 048
     Dates: start: 20080822, end: 20080901
  4. PEGASPARGASE(PEGASPARGASE) [Suspect]
     Indication: ACUTE LYMPHOCYTIC LEUKAEMIA
     Dosage: INTRAMUSCULAR
     Route: 030
     Dates: start: 20080822, end: 20080828
  5. DOXORUBICIN HCL [Suspect]
     Indication: ACUTE LYMPHOCYTIC LEUKAEMIA
     Dosage: 110 MG, INTRAVENOUS
     Route: 042
     Dates: start: 20080822, end: 20080822
  6. CYTARABINE [Suspect]
     Indication: ACUTE LYMPHOCYTIC LEUKAEMIA
     Dosage: INTRATHECAL
     Route: 037
     Dates: start: 20080821
  7. METHOTREXATE [Suspect]
     Indication: ACUTE LYMPHOCYTIC LEUKAEMIA
  8. FLUCONAZOLE [Concomitant]
  9. MIRALAX [Concomitant]
  10. ZANTAC 150 [Concomitant]
  11. BACTRIM [Concomitant]

REACTIONS (18)
  - ANAEMIA [None]
  - BLOOD PRESSURE INCREASED [None]
  - CATHETER RELATED COMPLICATION [None]
  - CENTRAL NERVOUS SYSTEM LESION [None]
  - CHILLS [None]
  - CONSTIPATION [None]
  - CONVULSION [None]
  - FLATULENCE [None]
  - GASTROINTESTINAL SOUNDS ABNORMAL [None]
  - GASTROOESOPHAGEAL REFLUX DISEASE [None]
  - INAPPROPRIATE ANTIDIURETIC HORMONE SECRETION [None]
  - NEUROPATHY PERIPHERAL [None]
  - NEUTROPENIA [None]
  - PANCREATITIS [None]
  - RETCHING [None]
  - THROMBOCYTOPENIA [None]
  - TRANSAMINASES INCREASED [None]
  - VENOUS THROMBOSIS LIMB [None]
